FAERS Safety Report 7897344-8 (Version None)
Quarter: 2011Q4

REPORT INFORMATION
  Report Type: 
  Country: None (occurrence: None)
  Receive Date: 20111107
  Receipt Date: 20111102
  Transmission Date: 20120403
  Serious: Yes (Other)
  Sender: FDA-Public Use
  Company Number: PHHY2011AU92847

PATIENT
  Sex: Female

DRUGS (10)
  1. CARTIA XT [Concomitant]
  2. CELEBREX [Concomitant]
     Dosage: 20 MG, UNK
  3. ALDACTONE [Concomitant]
     Dosage: 25 MG, UNK
  4. AMITRIPTYLINE HCL [Concomitant]
     Dosage: 50 MG, UNK
  5. ACETAMINOPHEN [Concomitant]
  6. SPIRIVA [Concomitant]
  7. CADUET [Concomitant]
     Dosage: 5 MG/ 20 MG
  8. ZOLEDRONOC ACID [Suspect]
     Indication: OSTEOPOROSIS
     Dosage: 5 MG, UNK
     Route: 042
     Dates: start: 20111019
  9. MICARDIS [Concomitant]
  10. FLUTICASONE PROPIONATE/SALMETEROL [Concomitant]

REACTIONS (7)
  - CHEST DISCOMFORT [None]
  - DRY SKIN [None]
  - FEELING HOT [None]
  - PRURITUS [None]
  - HYPERSENSITIVITY [None]
  - ASTHMA [None]
  - HYPOAESTHESIA ORAL [None]
